FAERS Safety Report 19803217 (Version 4)
Quarter: 2022Q1

REPORT INFORMATION
  Report Type: Report from Study
  Country: US (occurrence: US)
  Receive Date: 20210908
  Receipt Date: 20220130
  Transmission Date: 20220423
  Serious: Yes (Other)
  Sender: FDA-Public Use
  Company Number: US-ABBVIE-21K-163-4069206-00

PATIENT
  Sex: Male

DRUGS (2)
  1. IMBRUVICA [Suspect]
     Active Substance: IBRUTINIB
     Indication: Chronic lymphocytic leukaemia
     Route: 048
     Dates: start: 20180701
  2. MODERNA COVID-19 VACCINE [Concomitant]
     Active Substance: ELASOMERAN
     Indication: COVID-19 immunisation
     Route: 030

REACTIONS (17)
  - Lung lobectomy [Not Recovered/Not Resolved]
  - Spinal fracture [Not Recovered/Not Resolved]
  - Squamous cell carcinoma of skin [Recovering/Resolving]
  - Gait inability [Unknown]
  - Urinary tract disorder [Not Recovered/Not Resolved]
  - Emphysema [Not Recovered/Not Resolved]
  - Diverticulum [Not Recovered/Not Resolved]
  - Diverticulitis [Unknown]
  - Back pain [Not Recovered/Not Resolved]
  - Pain [Recovering/Resolving]
  - Arthralgia [Not Recovered/Not Resolved]
  - Bone pain [Not Recovered/Not Resolved]
  - Myalgia [Not Recovered/Not Resolved]
  - COVID-19 [Recovering/Resolving]
  - Pneumonia [Recovering/Resolving]
  - Feeling abnormal [Not Recovered/Not Resolved]
  - Oxygen saturation decreased [Recovered/Resolved]

NARRATIVE: CASE EVENT DATE: 20200101
